FAERS Safety Report 11320717 (Version 1)
Quarter: 2015Q3

REPORT INFORMATION
  Report Type: Spontaneous
  Country: US (occurrence: None)
  Receive Date: 20150728
  Receipt Date: 20150728
  Transmission Date: 20151125
  Serious: No
  Sender: FDA-Public Use
  Company Number: None

PATIENT
  Age: 19 Year
  Sex: Female
  Weight: 79.38 kg

DRUGS (4)
  1. SILVADENE [Suspect]
     Active Substance: SILVER SULFADIAZINE
     Indication: THERMAL BURN
     Dosage: APPLY TO BURN AREAS  BID  TOPICAL
     Route: 061
     Dates: start: 20150720, end: 20150723
  2. SILVADENE [Suspect]
     Active Substance: SILVER SULFADIAZINE
     Indication: ACCIDENT AT WORK
     Dosage: APPLY TO BURN AREAS  BID  TOPICAL
     Route: 061
     Dates: start: 20150720, end: 20150723
  3. HYDROCORTISONE CREAM [Concomitant]
     Active Substance: HYDROCORTISONE
  4. DOMEBORO SOLUTION/POWDER [Concomitant]

REACTIONS (2)
  - Application site reaction [None]
  - Rash maculo-papular [None]

NARRATIVE: CASE EVENT DATE: 20150724
